FAERS Safety Report 9472621 (Version 1)
Quarter: 2013Q3

REPORT INFORMATION
  Report Type: Spontaneous
  Country: US (occurrence: None)
  Receive Date: 20130821
  Receipt Date: 20130821
  Transmission Date: 20140515
  Serious: Yes (Life-Threatening)
  Sender: FDA-Public Use
  Company Number: None

PATIENT
  Sex: Male

DRUGS (2)
  1. PEGASYS PROCLICK [Suspect]
     Dosage: INJECT 135MCG UNDER THE SKIN WEEKLY
     Route: 058
  2. RIBASPHERE [Concomitant]

REACTIONS (1)
  - Anaemia [None]
